FAERS Safety Report 7463939-9 (Version None)
Quarter: 2011Q2

REPORT INFORMATION
  Report Type: 
  Country: None (occurrence: None)
  Receive Date: 20110506
  Receipt Date: 20110428
  Transmission Date: 20111010
  Serious: Yes (Other)
  Sender: FDA-Public Use
  Company Number: AU-WATSON-2011-05888

PATIENT
  Sex: Female

DRUGS (2)
  1. TRELSTAR [Suspect]
     Indication: BREAST CANCER
     Dosage: 3.75 MG ONCE A MONTH
     Route: 030
     Dates: start: 20061102
  2. EXEMESTANE [Concomitant]
     Indication: BREAST CANCER

REACTIONS (3)
  - BONE DENSITY ABNORMAL [None]
  - FALL [None]
  - HAND FRACTURE [None]
